FAERS Safety Report 6269643-7 (Version None)
Quarter: 2009Q3

REPORT INFORMATION
  Report Type: 
  Country: None (occurrence: None)
  Receive Date: 20090714
  Receipt Date: 20090706
  Transmission Date: 20100115
  Serious: Yes (Other)
  Sender: FDA-Public Use
  Company Number: IPS_01703_2009

PATIENT
  Sex: Female

DRUGS (2)
  1. APOKYN [Suspect]
     Indication: DRUG USE FOR UNKNOWN INDICATION
     Dosage: (0.2 ML, SUBCUTANEOUS
     Route: 058
  2. TIGAN [Concomitant]

REACTIONS (8)
  - ANXIETY [None]
  - CONDITION AGGRAVATED [None]
  - FEELING ABNORMAL [None]
  - HEADACHE [None]
  - NAUSEA [None]
  - PARKINSON'S DISEASE [None]
  - PHARYNGEAL OEDEMA [None]
  - SOMNOLENCE [None]
